FAERS Safety Report 4941197-4 (Version None)
Quarter: 2006Q1

REPORT INFORMATION
  Report Type: 
  Country: None (occurrence: None)
  Receive Date: 20060310
  Receipt Date: 20060310
  Transmission Date: 20060701
  Serious: Yes (Other)
  Sender: FDA-Public Use
  Company Number: None

PATIENT
  Sex: Male

DRUGS (1)
  1. CRESTOR [Suspect]
     Indication: HYPERCHOLESTEROLAEMIA
     Dosage: 10 MG QHS PO
     Route: 048
     Dates: start: 20060105, end: 20060228

REACTIONS (7)
  - ABDOMINAL PAIN [None]
  - CHROMATURIA [None]
  - HEPATITIS [None]
  - INFLUENZA [None]
  - MYALGIA [None]
  - RHABDOMYOLYSIS [None]
  - URINE OUTPUT DECREASED [None]
